FAERS Safety Report 15575693 (Version 2)
Quarter: 2018Q4

REPORT INFORMATION
  Report Type: Spontaneous
  Country: US (occurrence: US)
  Receive Date: 20181101
  Receipt Date: 20181121
  Transmission Date: 20190205
  Serious: Yes (Hospitalization, Other)
  Sender: FDA-Public Use
  Company Number: US-CELGENEUS-USA-20181009751

PATIENT
  Sex: Male

DRUGS (1)
  1. REVLIMID [Suspect]
     Active Substance: LENALIDOMIDE
     Indication: PLASMA CELL MYELOMA
     Dosage: 15 MILLIGRAM
     Route: 048
     Dates: start: 20181008, end: 201810

REACTIONS (9)
  - Thrombosis [Unknown]
  - Muscle spasms [Unknown]
  - Full blood count decreased [Unknown]
  - Epistaxis [Unknown]
  - Hypophagia [Unknown]
  - General physical health deterioration [Unknown]
  - Anaemia [Unknown]
  - Mental impairment [Unknown]
  - Gait disturbance [Unknown]

NARRATIVE: CASE EVENT DATE: 2018
